FAERS Safety Report 14071052 (Version 4)
Quarter: 2017Q4

REPORT INFORMATION
  Report Type: Report from Study
  Country: IL (occurrence: IL)
  Receive Date: 20171011
  Receipt Date: 20171227
  Transmission Date: 20180321
  Serious: Yes (Hospitalization, Other)
  Sender: FDA-Public Use
  Company Number: IL-TAKEDA-2017TUS020818

PATIENT
  Age: 43 Year
  Sex: Female

DRUGS (8)
  1. RAFASSAL                           /00000301/ [Concomitant]
     Dosage: UNK
  2. HYDROCORTISONE. [Concomitant]
     Active Substance: HYDROCORTISONE
     Indication: PREMEDICATION
     Dosage: UNK
  3. VITAMIN D [Concomitant]
     Active Substance: CHOLECALCIFEROL
     Dosage: UNK
  4. CORTISONE [Concomitant]
     Active Substance: CORTISONE\HYDROCORTISONE
     Dosage: UNK
     Route: 042
  5. VEDOLIZUMAB [Suspect]
     Active Substance: VEDOLIZUMAB
     Dosage: 300 MG, Q4WEEKS
     Route: 042
  6. VEDOLIZUMAB [Suspect]
     Active Substance: VEDOLIZUMAB
     Indication: COLITIS ULCERATIVE
     Dosage: 300 MG, UNK
     Route: 042
     Dates: start: 20170928
  7. LORATADINE. [Concomitant]
     Active Substance: LORATADINE
     Indication: PREMEDICATION
     Dosage: UNK
  8. IMURAN [Concomitant]
     Active Substance: AZATHIOPRINE
     Dosage: UNK

REACTIONS (6)
  - Incorrect drug administration duration [Unknown]
  - Infusion related reaction [Not Recovered/Not Resolved]
  - Myalgia [Not Recovered/Not Resolved]
  - Pneumonia [Not Recovered/Not Resolved]
  - Pyrexia [Not Recovered/Not Resolved]
  - Gastrointestinal obstruction [Recovered/Resolved]

NARRATIVE: CASE EVENT DATE: 20170928
